FAERS Safety Report 13692952 (Version 3)
Quarter: 2017Q3

REPORT INFORMATION
  Report Type: Spontaneous
  Country: US (occurrence: US)
  Receive Date: 20170627
  Receipt Date: 20170901
  Transmission Date: 20171127
  Serious: No
  Sender: FDA-Public Use
  Company Number: US-PFIZER INC-2017274217

PATIENT
  Age: 73 Year
  Sex: Female
  Weight: 67.57 kg

DRUGS (2)
  1. IBRANCE [Suspect]
     Active Substance: PALBOCICLIB
     Indication: BREAST CANCER METASTATIC
     Dosage: 125 MG, CYCLIC[D 1-21 Q 28 DAYS]
     Route: 048
     Dates: start: 20170606, end: 201708
  2. LETROZOLE. [Suspect]
     Active Substance: LETROZOLE
     Dosage: UNK

REACTIONS (6)
  - Dysgeusia [Unknown]
  - Tremor [Unknown]
  - Constipation [Unknown]
  - Malaise [Unknown]
  - Retching [Unknown]
  - Vomiting [Unknown]
